FAERS Safety Report 11948889 (Version 3)
Quarter: 2016Q2

REPORT INFORMATION
  Report Type: Report from Study
  Country: PR (occurrence: PR)
  Receive Date: 20160125
  Receipt Date: 20160502
  Transmission Date: 20160815
  Serious: No
  Sender: FDA-Public Use
  Company Number: PR-ABBVIE-15K-131-1484795-00

PATIENT
  Age: 46 Year
  Sex: Male

DRUGS (4)
  1. HUMIRA [Suspect]
     Active Substance: ADALIMUMAB
     Indication: PSORIASIS
     Route: 058
     Dates: start: 20140904
  2. RELAFEN [Concomitant]
     Active Substance: NABUMETONE
     Indication: ILL-DEFINED DISORDER
  3. HUMIRA [Suspect]
     Active Substance: ADALIMUMAB
     Indication: PSORIATIC ARTHROPATHY
     Route: 058
  4. ALBUTEROL. [Concomitant]
     Active Substance: ALBUTEROL
     Indication: ASTHMA
     Route: 048

REACTIONS (7)
  - Skin abrasion [Unknown]
  - Limb discomfort [Not Recovered/Not Resolved]
  - Psoriasis [Recovering/Resolving]
  - Skin disorder [Recovering/Resolving]
  - Psoriatic arthropathy [Recovering/Resolving]
  - Blood glucose increased [Unknown]
  - Psoriasis [Recovered/Resolved]

NARRATIVE: CASE EVENT DATE: 2014
